FAERS Safety Report 9459911 (Version 1)
Quarter: 2013Q3

REPORT INFORMATION
  Report Type: Spontaneous
  Country: IT (occurrence: IT)
  Receive Date: 20130815
  Receipt Date: 20130815
  Transmission Date: 20140515
  Serious: Yes (Hospitalization)
  Sender: FDA-Public Use
  Company Number: IT-PFIZER INC-2013235134

PATIENT
  Age: 77 Year
  Sex: Female

DRUGS (3)
  1. XANAX [Suspect]
     Indication: DEMENTIA WITH LEWY BODIES
     Dosage: 1 G, 1X/DAY
     Route: 048
     Dates: start: 20130101, end: 20130629
  2. SEROQUEL [Suspect]
     Indication: DEMENTIA WITH LEWY BODIES
     Dosage: 50 MG, 1X/DAY
     Route: 048
     Dates: start: 20130101, end: 20130629
  3. CARDIOASPIRIN [Concomitant]

REACTIONS (7)
  - Aphasia [Recovered/Resolved]
  - Confusional state [Recovered/Resolved]
  - Drug abuse [Recovered/Resolved]
  - Overdose [Recovered/Resolved]
  - Dehydration [Recovered/Resolved]
  - Vomiting [Recovered/Resolved]
  - Off label use [Unknown]
